FAERS Safety Report 19462398 (Version 3)
Quarter: 2021Q4

REPORT INFORMATION
  Report Type: Spontaneous
  Country: US (occurrence: US)
  Receive Date: 20210625
  Receipt Date: 20211001
  Transmission Date: 20220303
  Serious: Yes (Hospitalization, Other)
  Sender: FDA-Public Use
  Company Number: US-HIKMA PHARMACEUTICALS USA INC.-US-H14001-21-02808

PATIENT
  Age: 18 Year
  Sex: Male
  Weight: 127.2 kg

DRUGS (14)
  1. METHOTREXATE [Suspect]
     Active Substance: METHOTREXATE
     Indication: Acute lymphocytic leukaemia
     Route: 042
     Dates: start: 20210528, end: 20210607
  2. METHOTREXATE [Suspect]
     Active Substance: METHOTREXATE
     Route: 037
     Dates: start: 20210528
  3. METHOTREXATE [Suspect]
     Active Substance: METHOTREXATE
     Route: 042
     Dates: start: 20210616
  4. METHOTREXATE [Suspect]
     Active Substance: METHOTREXATE
     Indication: Acute lymphocytic leukaemia
     Route: 048
     Dates: start: 20210811, end: 20210830
  5. METHOTREXATE [Suspect]
     Active Substance: METHOTREXATE
     Dosage: UNKNOWN
     Route: 048
     Dates: start: 20210913
  6. MERCAPTOPURINE [Suspect]
     Active Substance: MERCAPTOPURINE
     Indication: Acute lymphocytic leukaemia
     Dosage: 200 MG X4 DAYS/WEEK, 175 MG X3 DAYS/WEEK, DAYS 1-84
     Route: 048
     Dates: start: 20210811, end: 20210830
  7. MERCAPTOPURINE [Suspect]
     Active Substance: MERCAPTOPURINE
     Dosage: 200 MG X4 DAYS/WEEK, 175 MG X3 DAYS/WEEK, DAYS 1-84
     Route: 048
     Dates: start: 20210831
  8. PREDNISONE [Suspect]
     Active Substance: PREDNISONE
     Indication: Acute lymphocytic leukaemia
     Dosage: 50 MILLIGRAM, BID, DAYS 1-5, 29-33 AND 57-61
     Route: 048
     Dates: start: 20210811
  9. RUXOLITINIB [Suspect]
     Active Substance: RUXOLITINIB
     Indication: Acute lymphocytic leukaemia
     Route: 048
     Dates: start: 20210528, end: 20210604
  10. RUXOLITINIB [Suspect]
     Active Substance: RUXOLITINIB
     Route: 048
     Dates: start: 20210811
  11. VINCRISTINE [Suspect]
     Active Substance: VINCRISTINE
     Indication: Acute lymphocytic leukaemia
     Route: 042
     Dates: start: 20210528, end: 20210607
  12. VINCRISTINE [Suspect]
     Active Substance: VINCRISTINE
     Route: 042
     Dates: start: 20210616
  13. VINCRISTINE [Suspect]
     Active Substance: VINCRISTINE
     Route: 042
     Dates: start: 20210811
  14. PEGASPARGASE [Suspect]
     Active Substance: PEGASPARGASE
     Indication: Acute lymphocytic leukaemia
     Dosage: 2,500 IU/M2/DOSE
     Route: 042
     Dates: start: 20210529

REACTIONS (16)
  - Anorectal infection [Recovered/Resolved]
  - Proctalgia [Recovering/Resolving]
  - Condition aggravated [Recovering/Resolving]
  - White blood cell count decreased [Unknown]
  - Haemoglobin decreased [Unknown]
  - Perirectal abscess [Unknown]
  - Pyrexia [Unknown]
  - Anal abscess [Unknown]
  - Hepatic steatosis [Unknown]
  - Escherichia infection [Unknown]
  - Enterococcal infection [Unknown]
  - Staphylococcal infection [Unknown]
  - Bacteroides infection [Unknown]
  - Neutrophil count decreased [Unknown]
  - Bacterial infection [Unknown]
  - Drainage [Recovered/Resolved]

NARRATIVE: CASE EVENT DATE: 20210604
